FAERS Safety Report 7754915-7 (Version None)
Quarter: 2011Q3

REPORT INFORMATION
  Report Type: 
  Country: None (occurrence: None)
  Receive Date: 20110916
  Receipt Date: 20110907
  Transmission Date: 20111222
  Serious: No
  Sender: FDA-Public Use
  Company Number: US-BIOGENIDEC-2011BI034840

PATIENT
  Age: 52 Year
  Sex: Female

DRUGS (3)
  1. TYSABRI [Suspect]
     Route: 042
     Dates: start: 20050126, end: 20050222
  2. TYSABRI [Suspect]
     Route: 042
     Dates: start: 20061220, end: 20090420
  3. TYSABRI [Suspect]
     Indication: MULTIPLE SCLEROSIS
     Route: 042
     Dates: start: 20110414

REACTIONS (8)
  - EAR PAIN [None]
  - BACK PAIN [None]
  - FALL [None]
  - CONTUSION [None]
  - HEAD INJURY [None]
  - NECK PAIN [None]
  - HALLUCINATION [None]
  - DIZZINESS [None]
